FAERS Safety Report 15545644 (Version 1)
Quarter: 2018Q4

REPORT INFORMATION
  Report Type: Spontaneous
  Country: US (occurrence: US)
  Receive Date: 20181017
  Receipt Date: 20181017
  Transmission Date: 20190205
  Serious: Yes (Hospitalization)
  Sender: FDA-Public Use
  Company Number: None

PATIENT
  Age: 56 Year
  Sex: Male
  Weight: 90.7 kg

DRUGS (13)
  1. GEMCITABINE [Suspect]
     Active Substance: GEMCITABINE\GEMCITABINE HYDROCHLORIDE
     Indication: PANCREATIC CARCINOMA
     Route: 042
     Dates: start: 20180207, end: 20180221
  2. TOPAMAX [Concomitant]
     Active Substance: TOPIRAMATE
     Indication: MIGRAINE
     Route: 048
     Dates: start: 201712
  3. VICODIN [Concomitant]
     Active Substance: ACETAMINOPHEN\HYDROCODONE BITARTRATE
     Dosage: ?          OTHER DOSE:10/325 MG, PRN;?
     Route: 048
  4. MIRTAZAPINE. [Concomitant]
     Active Substance: MIRTAZAPINE
     Route: 048
     Dates: start: 201712
  5. IMITREX [Concomitant]
     Active Substance: SUMATRIPTAN SUCCINATE
     Indication: MIGRAINE
     Route: 048
  6. EXEDRIN [Concomitant]
     Indication: MIGRAINE
     Route: 048
  7. FLEXERIL [Concomitant]
     Active Substance: CYCLOBENZAPRINE HYDROCHLORIDE
     Route: 048
  8. ZOFRAN ODT [Concomitant]
     Active Substance: ONDANSETRON HYDROCHLORIDE
     Indication: NAUSEA
     Route: 048
     Dates: start: 201712
  9. CBD OIL [Concomitant]
     Active Substance: CANNABIDIOL\HERBALS
     Route: 048
     Dates: start: 201712
  10. GLUCOSAMINE OTC [Concomitant]
     Route: 048
  11. COLACE OTC [Concomitant]
     Indication: CONSTIPATION
     Route: 048
  12. CIPROFLOXACIN HCL [Concomitant]
     Active Substance: CIPROFLOXACIN HYDROCHLORIDE
     Route: 048
     Dates: start: 20180310, end: 20180312
  13. NAB-PACLITAXEL [Suspect]
     Active Substance: PACLITAXEL

REACTIONS (3)
  - Bile duct stenosis [None]
  - Pancreatic carcinoma metastatic [None]
  - Duodenal ulcer [None]

NARRATIVE: CASE EVENT DATE: 20180308
